FAERS Safety Report 8072186-1 (Version None)
Quarter: 2011Q4

REPORT INFORMATION
  Report Type: 
  Country: None (occurrence: None)
  Receive Date: 20111221
  Receipt Date: 20110615
  Transmission Date: 20120403
  Serious: Yes (Other)
  Sender: FDA-Public Use
  Company Number: PHHY2011US49558

PATIENT
  Age: 65 Year
  Sex: Male
  Weight: 77.8 kg

DRUGS (8)
  1. VALTREX [Concomitant]
  2. AMBIEN [Concomitant]
  3. DECITABINE (DECITABINE) [Concomitant]
  4. LEVGREEN (ACETYLSALICYLIC ACID) [Concomitant]
  5. EXJADE [Suspect]
     Indication: HAEMOCHROMATOSIS
     Dosage: 1500 MG, QD, ORAL
     Route: 048
     Dates: start: 20110310, end: 20110429
  6. EXJADE [Suspect]
     Indication: ANAEMIA
     Dosage: 1500 MG, QD, ORAL
     Route: 048
     Dates: start: 20110310, end: 20110429
  7. DIFLUCAN [Concomitant]
  8. BLOOD TRANSFUSIONS (NO INGREDIENTS/SUBSTANCES) [Concomitant]

REACTIONS (2)
  - BLOOD CREATININE INCREASED [None]
  - BLOOD UREA INCREASED [None]
